FAERS Safety Report 5720091-5 (Version None)
Quarter: 2008Q2

REPORT INFORMATION
  Report Type: 
  Country: None (occurrence: None)
  Receive Date: 20080428
  Receipt Date: 20080425
  Transmission Date: 20081010
  Serious: Yes (Hospitalization, Other)
  Sender: FDA-Public Use
  Company Number: FR-RB-000980-08

PATIENT
  Age: 26 Year
  Sex: Male

DRUGS (1)
  1. SUBUTEX [Suspect]
     Route: 042
     Dates: start: 20051201

REACTIONS (3)
  - ABSCESS [None]
  - DRUG DEPENDENCE [None]
  - SUBSTANCE ABUSE [None]
